FAERS Safety Report 18986872 (Version 1)
Quarter: 2021Q1

REPORT INFORMATION
  Report Type: Spontaneous
  Country: US (occurrence: US)
  Receive Date: 20210309
  Receipt Date: 20210309
  Transmission Date: 20210420
  Serious: No
  Sender: FDA-Public Use
  Company Number: US-PFIZER INC-2021236051

PATIENT
  Age: 56 Year
  Sex: Female
  Weight: 94.79 kg

DRUGS (5)
  1. COENZYME Q10 [Concomitant]
     Active Substance: DIETARY SUPPLEMENT\UBIDECARENONE
     Dosage: 100 MG
  2. VITAMIN D3 [Concomitant]
     Active Substance: CHOLECALCIFEROL
     Dosage: 25 UG
  3. CALCIUM CARBONATE. [Concomitant]
     Active Substance: CALCIUM CARBONATE
     Dosage: 500( 125)
  4. MIRALAX [Concomitant]
     Active Substance: POLYETHYLENE GLYCOL 3350
     Dosage: 17G /DO
  5. IBRANCE [Suspect]
     Active Substance: PALBOCICLIB
     Indication: BREAST CANCER FEMALE
     Dosage: 125 MG, CYCLIC ( 1 DAILY FOR 21 DAYS)
     Route: 048
     Dates: start: 20210122

REACTIONS (6)
  - Nasal congestion [Unknown]
  - Oral pain [Unknown]
  - Headache [Unknown]
  - Diarrhoea [Unknown]
  - Gastric disorder [Unknown]
  - Fatigue [Unknown]
